FAERS Safety Report 14768153 (Version 1)
Quarter: 2018Q2

REPORT INFORMATION
  Report Type: Spontaneous
  Country: BE (occurrence: BE)
  Receive Date: 20180417
  Receipt Date: 20180417
  Transmission Date: 20180711
  Serious: Yes (Hospitalization, Other)
  Sender: FDA-Public Use
  Company Number: PHHY2016BE186642

PATIENT
  Age: 78 Year
  Sex: Female
  Weight: 81 kg

DRUGS (23)
  1. PACLITAXEL. [Suspect]
     Active Substance: PACLITAXEL
     Dosage: 60 MG/M2, QW
     Route: 042
     Dates: start: 20160210
  2. PACLITAXEL. [Suspect]
     Active Substance: PACLITAXEL
     Dosage: 60 MG/M2, QW
     Route: 042
     Dates: start: 20160609
  3. CARBOPLATIN. [Suspect]
     Active Substance: CARBOPLATIN
     Indication: OVARIAN CANCER
     Dosage: 1 DF, QW (1 AUC WEEKLY)
     Route: 042
     Dates: start: 20151217
  4. CARBOPLATIN. [Suspect]
     Active Substance: CARBOPLATIN
     Dosage: 1 DF, QW (2 AUC WEEKLY)
     Route: 042
     Dates: start: 20160121
  5. BEVACIZUMAB. [Suspect]
     Active Substance: BEVACIZUMAB
     Dosage: 1170 MG, Q3W
     Route: 042
     Dates: start: 20160107
  6. ZOFRAN [Concomitant]
     Active Substance: ONDANSETRON HYDROCHLORIDE
     Indication: INFUSION RELATED REACTION
     Route: 065
  7. ZANTAC [Concomitant]
     Active Substance: RANITIDINE HYDROCHLORIDE
     Indication: INFUSION RELATED REACTION
     Route: 065
  8. LASIX [Concomitant]
     Active Substance: FUROSEMIDE
     Indication: PRODUCT USED FOR UNKNOWN INDICATION
     Route: 065
  9. PACLITAXEL. [Suspect]
     Active Substance: PACLITAXEL
     Dosage: 60 MG/M2, QW
     Route: 042
     Dates: start: 20160128
  10. XYZALL [Concomitant]
     Active Substance: LEVOCETIRIZINE DIHYDROCHLORIDE
     Indication: INFUSION RELATED REACTION
     Route: 065
  11. FORLAX [Concomitant]
     Active Substance: POLYETHYLENE GLYCOL 4000
     Indication: PRODUCT USED FOR UNKNOWN INDICATION
     Route: 065
  12. CARBOPLATIN. [Suspect]
     Active Substance: CARBOPLATIN
     Dosage: 1 DF, QW (2 AUC WEEKLY)
     Route: 042
     Dates: start: 20151224
  13. CARBOPLATIN. [Suspect]
     Active Substance: CARBOPLATIN
     Dosage: 1 DF, QW (2 AUC WEEKLY)
     Route: 042
     Dates: start: 20160128
  14. PACLITAXEL. [Suspect]
     Active Substance: PACLITAXEL
     Indication: OVARIAN CANCER
     Dosage: 80 MG/M2, QW
     Route: 042
     Dates: start: 20151217
  15. PACLITAXEL. [Suspect]
     Active Substance: PACLITAXEL
     Dosage: 80 MG/M2, QW
     Route: 042
     Dates: start: 20151224
  16. CARBOPLATIN. [Suspect]
     Active Substance: CARBOPLATIN
     Dosage: 1 DF, QW (1.5 AUC WEEKLY)
     Route: 042
     Dates: start: 20160609
  17. PACLITAXEL. [Suspect]
     Active Substance: PACLITAXEL
     Dosage: 60 MG/M2, QW
     Route: 042
     Dates: start: 20160121
  18. CLEXANE [Concomitant]
     Active Substance: ENOXAPARIN SODIUM
     Indication: PRODUCT USED FOR UNKNOWN INDICATION
     Route: 065
  19. BEVACIZUMAB. [Suspect]
     Active Substance: BEVACIZUMAB
     Indication: OVARIAN CANCER
     Dosage: 1215 MG, Q3W
     Route: 042
     Dates: start: 20151217
  20. BEVACIZUMAB. [Suspect]
     Active Substance: BEVACIZUMAB
     Dosage: 1095 MG, Q3W
     Route: 042
     Dates: start: 20160128
  21. BEVACIZUMAB. [Suspect]
     Active Substance: BEVACIZUMAB
     Dosage: 1080 MG, Q3W
     Route: 042
     Dates: start: 20160218
  22. CARBOPLATIN. [Suspect]
     Active Substance: CARBOPLATIN
     Dosage: 1 DF, QW (2 AUC WEEKLY)
     Route: 042
     Dates: start: 20160210
  23. DEXAMETHASON [Concomitant]
     Active Substance: DEXAMETHASONE
     Indication: INFUSION RELATED REACTION
     Route: 065

REACTIONS (7)
  - Epistaxis [Recovered/Resolved]
  - Neutropenia [Recovered/Resolved]
  - Staphylococcal infection [Recovered/Resolved]
  - Haemorrhagic diathesis [Recovered/Resolved]
  - Lymphorrhoea [Recovered/Resolved]
  - Proteinuria [Unknown]
  - Peripheral sensory neuropathy [Recovered/Resolved]

NARRATIVE: CASE EVENT DATE: 20151231
